FAERS Safety Report 21720733 (Version 2)
Quarter: 2024Q1

REPORT INFORMATION
  Report Type: Spontaneous
  Country: GB (occurrence: GB)
  Receive Date: 20221213
  Receipt Date: 20240115
  Transmission Date: 20240410
  Serious: Yes (Death, Other)
  Sender: FDA-Public Use
  Company Number: None

PATIENT
  Age: 57 Year
  Sex: Female

DRUGS (2)
  1. DULOXETINE [Suspect]
     Active Substance: DULOXETINE
     Indication: Neuralgia
     Dosage: UNKNOWN
     Route: 065
     Dates: start: 20211006, end: 20211022
  2. NORTRIPTYLINE [Concomitant]
     Active Substance: NORTRIPTYLINE
     Indication: Pain in extremity
     Dosage: UNKNOWN
     Route: 065

REACTIONS (5)
  - Completed suicide [Fatal]
  - Abdominal pain [Fatal]
  - Pain in extremity [Fatal]
  - Condition aggravated [Fatal]
  - Dissociation [Fatal]

NARRATIVE: CASE EVENT DATE: 20211101
